FAERS Safety Report 19939842 (Version 3)
Quarter: 2021Q4

REPORT INFORMATION
  Report Type: Spontaneous
  Country: US (occurrence: US)
  Receive Date: 20211011
  Receipt Date: 20211025
  Transmission Date: 20220303
  Serious: Yes (Hospitalization)
  Sender: FDA-Public Use
  Company Number: US-PFIZER INC-202101332578

PATIENT
  Age: 62 Year
  Sex: Male
  Weight: 102.6 kg

DRUGS (1)
  1. CHANTIX [Suspect]
     Active Substance: VARENICLINE TARTRATE
     Indication: Smoking cessation therapy
     Dosage: 0.5 MG

REACTIONS (3)
  - Recalled product administered [Unknown]
  - Swelling [Unknown]
  - Swollen tongue [Unknown]
